FAERS Safety Report 7534914 (Version 3)
Quarter: 2012Q4

REPORT INFORMATION
  Report Type: Report from Study
  Country: US (occurrence: US)
  Receive Date: 20100810
  Receipt Date: 20121004
  Transmission Date: 20130627
  Serious: No
  Sender: FDA-Public Use
  Company Number: US-JNJFOC-20100800563

PATIENT
  Age: 72 Year
  Sex: Female
  Weight: 84.1 kg

DRUGS (24)
  1. USTEKINUMAB [Suspect]
     Indication: SARCOIDOSIS
     Route: 058
     Dates: start: 20100414
  2. USTEKINUMAB [Suspect]
     Indication: SARCOIDOSIS
     Route: 058
     Dates: start: 20100217
  3. PREDNISONE [Concomitant]
     Indication: SARCOIDOSIS
     Route: 048
  4. METHOTREXATE [Concomitant]
     Indication: SARCOIDOSIS
     Route: 048
  5. FOLIC ACID [Concomitant]
  6. METOPROLOL [Concomitant]
  7. JANUMET [Concomitant]
  8. LEVOTHYROXINE [Concomitant]
  9. NEXIUM [Concomitant]
  10. HYZAAR [Concomitant]
  11. LANTUS OPTIPEN [Concomitant]
  12. GLIPIZIDE [Concomitant]
  13. LIPITOR [Concomitant]
  14. MIRAPEX [Concomitant]
     Dates: end: 20100330
  15. TORSEMIDE [Concomitant]
  16. DARVON-N [Concomitant]
  17. LYRICA [Concomitant]
  18. CLONAZEPAM [Concomitant]
  19. HUMALOG [Concomitant]
  20. ASPIRIN [Concomitant]
  21. FISH OIL [Concomitant]
  22. TYLENOL [Concomitant]
  23. VITAMIN [Concomitant]
  24. VITAMIN D [Concomitant]

REACTIONS (1)
  - Squamous cell carcinoma of skin [Recovered/Resolved]
